FAERS Safety Report 4928653-X (Version None)
Quarter: 2006Q1

REPORT INFORMATION
  Report Type: 
  Country: None (occurrence: None)
  Receive Date: 20060227
  Receipt Date: 20060227
  Transmission Date: 20060701
  Serious: Yes (Life-Threatening, Hospitalization)
  Sender: FDA-Public Use
  Company Number: None

PATIENT
  Sex: Female
  Weight: 68.4932 kg

DRUGS (5)
  1. PIPERACILLIN AND TAZOBACTAM [Suspect]
     Indication: COLITIS
     Dosage: 3.375GM  ONCE  IV BOLUS
     Route: 040
     Dates: start: 20050224, end: 20050224
  2. LEVOFLOXACIN [Concomitant]
  3. MORPHINE [Concomitant]
  4. PROMETHAZINE [Concomitant]
  5. POTASSIUM CHLORIDE [Concomitant]

REACTIONS (2)
  - RASH PRURITIC [None]
  - SWELLING FACE [None]
